FAERS Safety Report 22372942 (Version 2)
Quarter: 2023Q2

REPORT INFORMATION
  Report Type: Spontaneous
  Country: CA (occurrence: CA)
  Receive Date: 20230526
  Receipt Date: 20230605
  Transmission Date: 20230721
  Serious: Yes (Other)
  Sender: FDA-Public Use
  Company Number: CA-PFIZER INC-202201051502

PATIENT
  Age: 79 Year
  Sex: Male
  Weight: 88 kg

DRUGS (3)
  1. RUXIENCE [Suspect]
     Active Substance: RITUXIMAB-PVVR
     Indication: Encephalitis autoimmune
     Dosage: 1000 MG EVERY 6 MONTHS
     Route: 042
     Dates: start: 20211019, end: 20211019
  2. RUXIENCE [Suspect]
     Active Substance: RITUXIMAB-PVVR
     Dosage: 1000 MG EVERY 6 MONTHS
     Route: 042
     Dates: start: 202205, end: 202205
  3. RUXIENCE [Suspect]
     Active Substance: RITUXIMAB-PVVR
     Dosage: 1000 MG EVERY 6 MONTHS
     Route: 042
     Dates: start: 20221109

REACTIONS (11)
  - Vascular stent insertion [Unknown]
  - Diabetes mellitus [Unknown]
  - Off label use [Unknown]
  - Pruritus [Not Recovered/Not Resolved]
  - Erythema [Not Recovered/Not Resolved]
  - Discomfort [Unknown]
  - Rash [Not Recovered/Not Resolved]
  - Blepharitis [Unknown]
  - Erythema of eyelid [Unknown]
  - Wound drainage [Not Recovered/Not Resolved]
  - Impaired healing [Not Recovered/Not Resolved]

NARRATIVE: CASE EVENT DATE: 20211019
